FAERS Safety Report 14623551 (Version 3)
Quarter: 2018Q2

REPORT INFORMATION
  Report Type: Spontaneous
  Country: DE (occurrence: DE)
  Receive Date: 20180312
  Receipt Date: 20180604
  Transmission Date: 20180711
  Serious: Yes (Disabling, Other)
  Sender: FDA-Public Use
  Company Number: DE-AUROBINDO-AUR-APL-2015-01805

PATIENT
  Age: 47 Year
  Sex: Female

DRUGS (8)
  1. EPIRUBICIN [Suspect]
     Active Substance: EPIRUBICIN
     Indication: BREAST CANCER
     Dosage: ()
     Route: 065
     Dates: start: 200812
  2. DOCETAXEL. [Suspect]
     Active Substance: DOCETAXEL
     Indication: BREAST CANCER
     Dosage: ()
     Route: 065
     Dates: start: 200812
  3. HYPERICUM                          /01166801/ [Suspect]
     Active Substance: HYPERICUM PERFORATUM
     Indication: SLEEP DISORDER
  4. HYPERICUM                          /01166801/ [Suspect]
     Active Substance: HYPERICUM PERFORATUM
     Indication: DEPRESSION
     Dosage: UNK
     Route: 065
  5. SERTRALINE [Suspect]
     Active Substance: SERTRALINE HYDROCHLORIDE
     Indication: SLEEP DISORDER
  6. SERTRALINE [Suspect]
     Active Substance: SERTRALINE HYDROCHLORIDE
     Indication: SLEEP DISORDER
  7. SERTRALINE [Suspect]
     Active Substance: SERTRALINE HYDROCHLORIDE
     Indication: DEPRESSION
     Dosage: 75 MG/DL, UNK
     Route: 065
  8. TAMOXIFEN [Suspect]
     Active Substance: TAMOXIFEN
     Indication: BREAST CANCER
     Dosage: ()
     Route: 065
     Dates: start: 200812

REACTIONS (19)
  - Depressed mood [Unknown]
  - Arthralgia [Unknown]
  - Vulvovaginal dryness [Unknown]
  - Insomnia [Unknown]
  - Hot flush [Unknown]
  - Off label use [Unknown]
  - Burning sensation [Unknown]
  - Anxiety [Unknown]
  - Cognitive disorder [Unknown]
  - Stress [Unknown]
  - Menopausal disorder [Unknown]
  - Hyperhidrosis [Unknown]
  - Memory impairment [Unknown]
  - Fatigue [Not Recovered/Not Resolved]
  - Menopausal symptoms [Unknown]
  - Arthropathy [Unknown]
  - Disturbance in attention [Unknown]
  - Libido decreased [Unknown]
  - Polyneuropathy [Unknown]
